FAERS Safety Report 6691043-6 (Version None)
Quarter: 2010Q2

REPORT INFORMATION
  Report Type: 
  Country: None (occurrence: None)
  Receive Date: 20100421
  Receipt Date: 20100408
  Transmission Date: 20101027
  Serious: No
  Sender: FDA-Public Use
  Company Number: GB-ELI_LILLY_AND_COMPANY-GB201002006263

PATIENT
  Age: 52 Year
  Sex: Female
  Weight: 63.039 kg

DRUGS (8)
  1. CYMBALTA [Suspect]
     Indication: DEPRESSION
     Dosage: 60 MG, UNKNOWN
     Route: 065
     Dates: start: 20080701
  2. CYMBALTA [Suspect]
     Dosage: 90 MG, UNKNOWN
     Route: 065
  3. CYMBALTA [Suspect]
     Dosage: 120 MG, UNKNOWN
     Route: 065
     Dates: start: 20091201
  4. CYMBALTA [Suspect]
     Dosage: 90 MG, UNKNOWN
     Route: 065
     Dates: start: 20100101
  5. CYMBALTA [Suspect]
     Dosage: 60 MG, UNKNOWN
     Route: 065
     Dates: start: 20100201
  6. PREMPAK [Concomitant]
     Indication: HORMONE LEVEL ABNORMAL
     Dosage: UNK, UNKNOWN
     Route: 065
     Dates: start: 20100201
  7. ANTIBIOTICS [Concomitant]
     Dosage: UNK, UNKNOWN
     Route: 065
     Dates: start: 20091201
  8. CORTICOSTEROID NOS [Concomitant]
     Dosage: UNK, UNKNOWN
     Route: 065
     Dates: start: 20091201

REACTIONS (20)
  - ABDOMINAL DISCOMFORT [None]
  - ABDOMINAL PAIN UPPER [None]
  - BLOOD CHOLESTEROL INCREASED [None]
  - BLOOD SODIUM DECREASED [None]
  - CHEST DISCOMFORT [None]
  - DECREASED APPETITE [None]
  - DEPRESSED MOOD [None]
  - FATIGUE [None]
  - FLATULENCE [None]
  - HEADACHE [None]
  - HEPATIC ENZYME INCREASED [None]
  - HORMONE LEVEL ABNORMAL [None]
  - HOT FLUSH [None]
  - INFLUENZA LIKE ILLNESS [None]
  - LOSS OF LIBIDO [None]
  - MYALGIA [None]
  - PERIPHERAL COLDNESS [None]
  - STRESS [None]
  - URINE ODOUR ABNORMAL [None]
  - VISUAL IMPAIRMENT [None]
